FAERS Safety Report 10803362 (Version 2)
Quarter: 2015Q1

REPORT INFORMATION
  Report Type: Spontaneous
  Country: US (occurrence: US)
  Receive Date: 20150217
  Receipt Date: 20150320
  Transmission Date: 20150721
  Serious: Yes (Other)
  Sender: FDA-Public Use
  Company Number: US-BAYER-2015-024333

PATIENT
  Age: 43 Year
  Sex: Female

DRUGS (5)
  1. ACETAMINOPHEN. [Concomitant]
     Active Substance: ACETAMINOPHEN
     Dosage: UNK
     Dates: start: 20120918
  2. MIRENA [Suspect]
     Active Substance: LEVONORGESTREL
     Indication: CONTRACEPTION
     Dosage: 20 MCG/24HR, CONT
     Route: 015
     Dates: start: 20120706, end: 20121210
  3. PHENTERMINE [Concomitant]
     Active Substance: PHENTERMINE
     Dosage: UNK
     Dates: start: 20120918
  4. LEVOTHYROXINE [Concomitant]
     Active Substance: LEVOTHYROXINE
     Indication: HYPOTHYROIDISM
     Dosage: UNK
     Dates: start: 2002
  5. HYDROCHLOROTHIAZIDE. [Concomitant]
     Active Substance: HYDROCHLOROTHIAZIDE
     Dosage: UNK
     Dates: start: 20120918

REACTIONS (15)
  - Injury [None]
  - Chemical injury [None]
  - Abdominal pain [None]
  - Drug ineffective [None]
  - Fear [None]
  - Pelvic pain [None]
  - Abdominal discomfort [None]
  - Depression [None]
  - Anxiety [None]
  - Genital haemorrhage [None]
  - Internal injury [None]
  - Uterine perforation [None]
  - Emotional distress [None]
  - Pregnancy with contraceptive device [None]
  - Depressed mood [None]

NARRATIVE: CASE EVENT DATE: 201211
